FAERS Safety Report 24594869 (Version 1)
Quarter: 2024Q4

REPORT INFORMATION
  Report Type: Spontaneous
  Country: CA (occurrence: CA)
  Receive Date: 20241108
  Receipt Date: 20241108
  Transmission Date: 20250115
  Serious: Yes (Hospitalization)
  Sender: ALEXION PHARMACEUTICALS
  Company Number: CA-AstraZeneca-CH-00720156A

PATIENT

DRUGS (4)
  1. ROFLUMILAST [Suspect]
     Active Substance: ROFLUMILAST
     Indication: Chronic obstructive pulmonary disease
  2. ROFLUMILAST [Suspect]
     Active Substance: ROFLUMILAST
  3. ROFLUMILAST [Suspect]
     Active Substance: ROFLUMILAST
  4. ROFLUMILAST [Suspect]
     Active Substance: ROFLUMILAST

REACTIONS (2)
  - Chronic obstructive pulmonary disease [Unknown]
  - Inability to afford medication [Unknown]
